FAERS Safety Report 8176557-4 (Version None)
Quarter: 2012Q1

REPORT INFORMATION
  Report Type: 
  Country: None (occurrence: None)
  Receive Date: 20120301
  Receipt Date: 20120220
  Transmission Date: 20120608
  Serious: Yes (Hospitalization, Other)
  Sender: FDA-Public Use
  Company Number: US-BAYER-201028172NA

PATIENT
  Age: 23 Year
  Sex: Female
  Weight: 61 kg

DRUGS (20)
  1. YAZ [Suspect]
     Dosage: UNK
     Dates: start: 20080401, end: 20080801
  2. NSAID'S [Concomitant]
     Dosage: UNK UNK, PRN
  3. PERCOCET [Concomitant]
     Dosage: 5/325MG, 1-2 TABLETS, Q4HR
     Route: 048
     Dates: start: 20080407
  4. MIDRIN [Concomitant]
     Dosage: UNK
     Dates: start: 20050101, end: 20080101
  5. DIPHENHYDRAMINE HCL [Concomitant]
     Dosage: 25 MG, EVERY 6 HOURS AS NEEDED
     Route: 048
     Dates: start: 20080402
  6. DICYCLOMINE [Concomitant]
     Dosage: 20 MG, TID
     Route: 048
     Dates: start: 20080502
  7. OXAPROZIN [Concomitant]
     Dosage: 600 MG, BID
     Route: 048
     Dates: start: 20080527
  8. AMBIEN [Concomitant]
     Indication: INSOMNIA
     Dosage: 5 MG, HS
     Route: 048
     Dates: start: 20080515
  9. TRAZODONE HCL [Concomitant]
     Indication: INSOMNIA
     Dosage: 50 MG, AT NIGHT
     Route: 048
     Dates: start: 20080521
  10. ZOFRAN [Concomitant]
     Dosage: 8 MG, ? HOUR PRIOR TO TAKING ANTIBIOTICS
     Route: 048
     Dates: start: 20080402
  11. LISINOPRIL [Concomitant]
     Dosage: 20 MG, QD
     Route: 048
     Dates: start: 20080102, end: 20080527
  12. HYDROMORPHONE HCL [Concomitant]
     Dosage: 2 MG, Q4HR
     Route: 048
     Dates: start: 20080429
  13. METRONIDAZOLE HYDROCHLORIDE [Concomitant]
     Dosage: 500 MG, EVERY 8 HOURS
     Dates: start: 20080401
  14. TRAMADOL HCL [Concomitant]
     Indication: PAIN
     Dosage: 50 MG,1-2 TABLETS EVERY 6 HOURS AS NEEDED
     Route: 048
     Dates: start: 20080527
  15. YAZ [Suspect]
     Indication: CONTRACEPTION
     Dosage: UNK
     Route: 048
     Dates: start: 20080401, end: 20080801
  16. LISINOPRIL [Concomitant]
     Indication: HYPERTENSION
     Dosage: UNK
     Dates: start: 20070101, end: 20090101
  17. CIPROFLOXACIN [Concomitant]
     Dosage: 500 MG, BID
     Route: 048
     Dates: start: 20080401
  18. CYCLOBENZAPRINE [Concomitant]
     Dosage: 10 MG, QD
     Route: 048
     Dates: start: 20080502
  19. ZOFRAN [Concomitant]
     Dates: start: 20080425
  20. ATENOLOL [Concomitant]
     Indication: HYPERTENSION
     Dosage: 50 MG, ? TABLET DAILY
     Route: 048
     Dates: start: 20080527

REACTIONS (7)
  - CHOLECYSTITIS [None]
  - PAIN [None]
  - BILIARY DYSKINESIA [None]
  - EMOTIONAL DISTRESS [None]
  - INJURY [None]
  - CHOLECYSTITIS CHRONIC [None]
  - ABDOMINAL PAIN UPPER [None]
